FAERS Safety Report 5873934-9 (Version None)
Quarter: 2008Q3

REPORT INFORMATION
  Report Type: 
  Country: None (occurrence: None)
  Receive Date: 20080906
  Receipt Date: 20080906
  Transmission Date: 20090109
  Serious: No
  Sender: FDA-Public Use
  Company Number: None

PATIENT
  Age: 15 Year
  Sex: Female
  Weight: 54 kg

DRUGS (1)
  1. METHIMAXOLE 10MG [Suspect]
     Indication: BASEDOW'S DISEASE
     Dosage: 30 MG DAILY PO
     Route: 048

REACTIONS (1)
  - RASH [None]
